FAERS Safety Report 8289227-9 (Version None)
Quarter: 2012Q2

REPORT INFORMATION
  Report Type: 
  Country: None (occurrence: None)
  Receive Date: 20120417
  Receipt Date: 20120411
  Transmission Date: 20120825
  Serious: Yes (Hospitalization, Other)
  Sender: FDA-Public Use
  Company Number: PHHY2012FR031502

PATIENT
  Sex: Male

DRUGS (6)
  1. NOROXIN [Concomitant]
     Dosage: 1 DF, BID
     Dates: start: 20111212, end: 20111217
  2. RISPERDAL [Concomitant]
     Dosage: 1 DF, QD
     Dates: start: 20100427
  3. TEGRETOL [Suspect]
     Dosage: 400 MG, QD
     Dates: start: 20100427, end: 20111215
  4. LORAZEPAM [Concomitant]
     Dosage: 1 DF, QD
     Dates: start: 20100427
  5. TEGRETOL [Suspect]
     Dosage: 200 MG, QD
     Dates: start: 20100427
  6. DEPAKENE [Concomitant]
     Dosage: 2.5 DF, QD

REACTIONS (8)
  - GASTROOESOPHAGEAL REFLUX DISEASE [None]
  - ANAEMIA [None]
  - GASTROINTESTINAL HAEMORRHAGE [None]
  - OESOPHAGEAL ULCER [None]
  - DYSPNOEA [None]
  - HYPONATRAEMIA [None]
  - ASTHENIA [None]
  - OEDEMA PERIPHERAL [None]
